FAERS Safety Report 6528527-7 (Version None)
Quarter: 2009Q4

REPORT INFORMATION
  Report Type: 
  Country: None (occurrence: None)
  Receive Date: 20091230
  Receipt Date: 20090622
  Transmission Date: 20100525
  Serious: Yes (Hospitalization, Other)
  Sender: FDA-Public Use
  Company Number: 2009CD0148

PATIENT
  Age: 1 Month
  Sex: Male

DRUGS (4)
  1. CEDAX [Suspect]
     Indication: PYELONEPHRITIS
     Dosage: 36 MG, DAILY5 MG, DAILY
     Dates: start: 20090312, end: 20090318
  2. TRIMETHOPRIM [Suspect]
     Indication: PYELONEPHRITIS
     Dates: start: 20090319, end: 20090323
  3. CLAFORN (CEFOTAXIME SODIUM) [Suspect]
     Indication: PYELONEPHRITIS
     Dosage: 390 MG,DAILY,IV
     Route: 042
     Dates: start: 20090309, end: 20090312
  4. ACETAMINOPHEN [Concomitant]

REACTIONS (8)
  - ACTIVATED PARTIAL THROMBOPLASTIN TIME SHORTENED [None]
  - CEREBRAL HAEMORRHAGE [None]
  - CRYING [None]
  - HAEMOGLOBIN DECREASED [None]
  - HYPOTONIA [None]
  - INTERNATIONAL NORMALISED RATIO INCREASED [None]
  - PROTHROMBIN LEVEL DECREASED [None]
  - VITAMIN K DECREASED [None]
